FAERS Safety Report 17431851 (Version 1)
Quarter: 2020Q1

REPORT INFORMATION
  Report Type: Spontaneous
  Country: US (occurrence: US)
  Receive Date: 20200218
  Receipt Date: 20200218
  Transmission Date: 20200409
  Serious: Yes (Other)
  Sender: FDA-Public Use
  Company Number: US-009507513-2002USA004017

PATIENT
  Sex: Female

DRUGS (2)
  1. NEXPLANON [Suspect]
     Active Substance: ETONOGESTREL
     Dosage: A UNIT
     Route: 059
     Dates: start: 201504
  2. NEXPLANON [Suspect]
     Active Substance: ETONOGESTREL
     Dosage: THE IMPLANT
     Route: 059
     Dates: start: 201804

REACTIONS (6)
  - Abdominal distension [Unknown]
  - Unintended pregnancy [Recovered/Resolved]
  - Menometrorrhagia [Not Recovered/Not Resolved]
  - Abortion induced [Unknown]
  - Nausea [Unknown]
  - Pregnancy with implant contraceptive [Recovered/Resolved]

NARRATIVE: CASE EVENT DATE: 2018
